FAERS Safety Report 9399053 (Version 2)
Quarter: 2013Q3

REPORT INFORMATION
  Report Type: Report from Study
  Country: US (occurrence: US)
  Receive Date: 20130715
  Receipt Date: 20130819
  Transmission Date: 20140515
  Serious: Yes (Life-Threatening, Hospitalization)
  Sender: FDA-Public Use
  Company Number: US-ROCHE-1248633

PATIENT
  Age: 58 Year
  Sex: Male
  Weight: 123.49 kg

DRUGS (5)
  1. RITUXAN [Suspect]
     Indication: IMMUNE THROMBOCYTOPENIC PURPURA
     Route: 042
     Dates: start: 20130625, end: 20130709
  2. PROMACTA [Concomitant]
     Indication: IMMUNE THROMBOCYTOPENIC PURPURA
     Route: 048
     Dates: start: 20120116
  3. ALDACTONE (UNITED STATES) [Concomitant]
     Route: 048
  4. CRESTOR [Concomitant]
     Route: 048
  5. TRIBENZOR [Concomitant]
     Dosage: 10-10-25MG DAILY
     Route: 048

REACTIONS (7)
  - Infusion related reaction [Recovered/Resolved]
  - Urticaria [Not Recovered/Not Resolved]
  - Chest discomfort [Recovered/Resolved]
  - Swelling face [Not Recovered/Not Resolved]
  - Swollen tongue [Not Recovered/Not Resolved]
  - Abdominal pain [Not Recovered/Not Resolved]
  - Nausea [Unknown]
